FAERS Safety Report 5341274-2 (Version None)
Quarter: 2007Q2

REPORT INFORMATION
  Report Type: 
  Country: None (occurrence: None)
  Receive Date: 20070404
  Receipt Date: 20070119
  Transmission Date: 20071010
  Serious: Yes (Other)
  Sender: FDA-Public Use
  Company Number: 2007005623

PATIENT
  Sex: Female

DRUGS (3)
  1. GEODON [Suspect]
     Dosage: 160 MG (80 MG, BID; EVERY DAY)
  2. PROLIXIN [Suspect]
  3. KLONOPIN [Concomitant]

REACTIONS (4)
  - ADVERSE EVENT [None]
  - ANGER [None]
  - MUSCULOSKELETAL STIFFNESS [None]
  - TONGUE DISORDER [None]
